FAERS Safety Report 18731483 (Version 1)
Quarter: 2021Q1

REPORT INFORMATION
  Report Type: Spontaneous
  Country: FR (occurrence: FR)
  Receive Date: 20210112
  Receipt Date: 20210112
  Transmission Date: 20210419
  Serious: Yes (Other)
  Sender: FDA-Public Use
  Company Number: FR-TAKEDA-2021TEU000156

PATIENT
  Age: 55 Year
  Sex: Female
  Weight: 62 kg

DRUGS (8)
  1. LEVOTHYROX [Suspect]
     Active Substance: LEVOTHYROXINE
     Indication: HYPOTHYROIDISM
     Dosage: 100 MICROGRAM, QD
     Route: 048
  2. KARDEGIC [Suspect]
     Active Substance: ASPIRIN DL-LYSINE
     Indication: PROPHYLAXIS
     Dosage: 75 MILLIGRAM, QD
     Route: 048
  3. LOXAPAC [LOXAPINE SUCCINATE] [Suspect]
     Active Substance: LOXAPINE SUCCINATE
     Indication: DEPRESSION
     Dosage: 25 MILLIGRAM, QD
     Route: 048
     Dates: start: 2018
  4. NALTREXONE HYDROCHLORIDE. [Suspect]
     Active Substance: NALTREXONE HYDROCHLORIDE
     Indication: ALCOHOL WITHDRAWAL SYNDROME
     Dosage: 50 MILLIGRAM, QD
     Route: 048
  5. EFFEXOR [Suspect]
     Active Substance: VENLAFAXINE HYDROCHLORIDE
     Indication: DEPRESSION
     Dosage: 150 MILLIGRAM, QD
     Route: 048
     Dates: start: 2018
  6. GUTRON [Suspect]
     Active Substance: MIDODRINE HYDROCHLORIDE
     Indication: ORTHOSTATIC HYPOTENSION
     Dosage: 2.5 MILLIGRAM, QD
     Route: 048
  7. ABILIFY [Suspect]
     Active Substance: ARIPIPRAZOLE
     Indication: DEPRESSION
     Dosage: 30 MILLIGRAM, QD
     Route: 048
     Dates: start: 2018
  8. VALIUM [Suspect]
     Active Substance: DIAZEPAM
     Indication: DEPRESSION
     Dosage: 15 MILLIGRAM, QD
     Route: 048
     Dates: start: 2018

REACTIONS (1)
  - Cholestasis [Not Recovered/Not Resolved]

NARRATIVE: CASE EVENT DATE: 20201126
